FAERS Safety Report 24338955 (Version 1)
Quarter: 2024Q3

REPORT INFORMATION
  Report Type: Spontaneous
  Country: US (occurrence: None)
  Receive Date: 20240918
  Receipt Date: 20240918
  Transmission Date: 20241017
  Serious: Yes (Life-Threatening)
  Sender: Public
  Company Number: None

PATIENT
  Age: 27 Year
  Sex: Female

DRUGS (22)
  1. BENLYSTA [Suspect]
     Active Substance: BELIMUMAB
     Indication: Systemic lupus erythematosus
     Dosage: 200 MG/ML WEEKLY SUBCUTANEOUS
     Route: 058
     Dates: start: 20240816, end: 20240918
  2. AZATHIOPRINE [Concomitant]
     Active Substance: AZATHIOPRINE
     Dates: start: 20220505
  3. HYDROXYCHLOROQUINE [Concomitant]
     Active Substance: HYDROXYCHLOROQUINE
     Dates: start: 20220309
  4. LABETALOL HYDROCHLORIDE [Concomitant]
     Active Substance: LABETALOL\LABETALOL HYDROCHLORIDE
     Dates: start: 20220831
  5. LOSARTAN [Concomitant]
     Active Substance: LOSARTAN\LOSARTAN POTASSIUM
     Dates: start: 20220414
  6. MYCOPHENOLATE MOFETIL [Concomitant]
     Active Substance: MYCOPHENOLATE MOFETIL
     Dates: start: 20220712
  7. nifedipine 90 mg [Concomitant]
     Dates: start: 20220309
  8. amox-clav 875/125 [Concomitant]
     Dates: start: 20230515, end: 20230525
  9. AMOXICILLIN [Concomitant]
     Active Substance: AMOXICILLIN
     Dates: start: 20240125, end: 20240204
  10. AZITHROMYCIN ANHYDROUS [Concomitant]
     Active Substance: AZITHROMYCIN ANHYDROUS
     Dates: start: 20240219, end: 20240225
  11. codeine-guaifenesin 10/100 mg [Concomitant]
     Dates: start: 20240125, end: 20240130
  12. ed a-hist 4/10 [Concomitant]
     Dates: start: 20230515, end: 20240523
  13. estradiol 0.5 mg [Concomitant]
  14. FLUTICASONE [Concomitant]
     Active Substance: FLUTICASONE
     Dates: start: 20231217, end: 20240116
  15. LEVOFLOXACIN [Concomitant]
     Active Substance: LEVOFLOXACIN
     Dates: start: 20221101, end: 20221108
  16. METHYLPREDNISOLONE [Concomitant]
     Active Substance: METHYLPREDNISOLONE
     Dates: start: 20240911, end: 20240916
  17. nore/eth/fe 0.4-35/75 mg [Concomitant]
     Dates: start: 20240826
  18. PREDNISONE [Concomitant]
     Active Substance: PREDNISONE
     Dates: start: 20240516, end: 20240601
  19. PROMETHAZINE DM 6.25-15 [Concomitant]
     Dates: start: 20221101, end: 20221108
  20. slynd 4 mg [Concomitant]
     Dates: start: 20230222
  21. sodium bicarbonate 10 g [Concomitant]
     Dates: start: 20230530, end: 20230621
  22. vitamin d2 50.000 [Concomitant]
     Dates: start: 20220420, end: 20240316

REACTIONS (1)
  - Drug hypersensitivity [None]

NARRATIVE: CASE EVENT DATE: 20240918
